FAERS Safety Report 18165613 (Version 1)
Quarter: 2020Q3

REPORT INFORMATION
  Report Type: Spontaneous
  Country: ES (occurrence: ES)
  Receive Date: 20200818
  Receipt Date: 20200818
  Transmission Date: 20201103
  Serious: Yes (Other)
  Sender: FDA-Public Use
  Company Number: ES-BAUSCH-BL-2020-022831

PATIENT
  Age: 34 Year
  Sex: Male

DRUGS (4)
  1. METILPREDNISOLONA (888A) [Suspect]
     Active Substance: METHYLPREDNISOLONE
     Indication: RENAL TRANSPLANT
     Dosage: 100 MG
     Route: 042
     Dates: start: 20200310, end: 20200311
  2. TIMOGLOBULINA [Suspect]
     Active Substance: LAPINE T-LYMPHOCYTE IMMUNE GLOBULIN
     Indication: RENAL TRANSPLANT
     Dosage: 100 MG; 1 VIAL
     Route: 042
     Dates: start: 20200310, end: 20200315
  3. MICOFENOLATO DE MOFETILO (7330LM) [Suspect]
     Active Substance: MYCOPHENOLATE MOFETIL
     Indication: PROPHYLAXIS AGAINST GRAFT VERSUS HOST DISEASE
     Dosage: 720 MG EVERY 12 HOURS
     Route: 048
     Dates: start: 20200310
  4. HIDROCORTISONA [Suspect]
     Active Substance: HYDROCORTISONE
     Indication: RENAL TRANSPLANT
     Dosage: 100 MG; FREQUENCY: 1 TOTAL
     Route: 042
     Dates: start: 20200310, end: 20200310

REACTIONS (1)
  - Pancreatitis acute [Recovered/Resolved]

NARRATIVE: CASE EVENT DATE: 20200315
